FAERS Safety Report 16530778 (Version 6)
Quarter: 2019Q4

REPORT INFORMATION
  Report Type: Report from Study
  Country: GB (occurrence: GB)
  Receive Date: 20190704
  Receipt Date: 20191231
  Transmission Date: 20200122
  Serious: Yes (Hospitalization, Other)
  Sender: FDA-Public Use
  Company Number: GB-AUROBINDO-AUR-APL-2019-038284

PATIENT
  Age: 69 Year
  Sex: Male

DRUGS (2)
  1. MELPHALAN. [Suspect]
     Active Substance: MELPHALAN
     Indication: ACUTE MYELOID LEUKAEMIA
     Dosage: 70 MILLIGRAM/SQ. METER (CONDITIONING)
     Route: 065
  2. FLUDARABINE PHOSPHATE. [Suspect]
     Active Substance: FLUDARABINE PHOSPHATE
     Indication: ACUTE MYELOID LEUKAEMIA
     Dosage: 25 MILLIGRAM/SQ. METER
     Route: 065

REACTIONS (18)
  - Erythema [Unknown]
  - Circulatory collapse [Unknown]
  - Skin toxicity [Unknown]
  - Skin exfoliation [Unknown]
  - Capillary leak syndrome [Unknown]
  - Generalised oedema [Unknown]
  - Toxic erythema of chemotherapy [Unknown]
  - Dermatitis exfoliative generalised [Unknown]
  - Oedema blister [Unknown]
  - Off label use [Unknown]
  - Product use in unapproved indication [Unknown]
  - Renal injury [Unknown]
  - Hidradenitis [Unknown]
  - Skin oedema [Unknown]
  - Rash [Unknown]
  - Dermatitis [Unknown]
  - Hypotension [Unknown]
  - Hypovolaemia [Unknown]
